FAERS Safety Report 5358482-7 (Version None)
Quarter: 2007Q2

REPORT INFORMATION
  Report Type: 
  Country: None (occurrence: None)
  Receive Date: 20070531
  Receipt Date: 20070213
  Transmission Date: 20071010
  Serious: No
  Sender: FDA-Public Use
  Company Number: 2006MP001114

PATIENT
  Age: 79 Year
  Sex: Male
  Weight: 90.2658 kg

DRUGS (12)
  1. DACOGEN [Suspect]
     Indication: MYELODYSPLASTIC SYNDROME
     Dosage: SEE IMAGE
     Route: 042
     Dates: start: 20060711, end: 20060714
  2. DACOGEN [Suspect]
     Indication: MYELODYSPLASTIC SYNDROME
     Dosage: SEE IMAGE
     Route: 042
     Dates: start: 20060801, end: 20060801
  3. DACOGEN [Suspect]
     Indication: MYELODYSPLASTIC SYNDROME
     Dosage: SEE IMAGE
     Route: 042
     Dates: start: 20061201, end: 20061201
  4. DACOGEN [Suspect]
     Indication: MYELODYSPLASTIC SYNDROME
     Dosage: SEE IMAGE
     Route: 042
     Dates: start: 20060101
  5. PREDNISONE [Concomitant]
  6. NEUPOGEN [Concomitant]
  7. ARANESP [Concomitant]
  8. LORAZEPAM [Concomitant]
  9. LEVAQUIN [Concomitant]
  10. SENOKOT [Concomitant]
  11. LEVAQUIN [Concomitant]
  12. IMMUNE GLOBULIN INTRAVENOUS (HUMAN) [Concomitant]

REACTIONS (3)
  - NEUTROPHIL COUNT DECREASED [None]
  - OFF LABEL USE [None]
  - PLATELET COUNT DECREASED [None]
